FAERS Safety Report 6123301-8 (Version None)
Quarter: 2009Q1

REPORT INFORMATION
  Report Type: 
  Country: None (occurrence: None)
  Receive Date: 20090318
  Receipt Date: 20090309
  Transmission Date: 20090719
  Serious: Yes (Death, Hospitalization)
  Sender: FDA-Public Use
  Company Number: JP-ROCHE-549162

PATIENT
  Sex: Female

DRUGS (17)
  1. DENOSINE IV [Suspect]
     Indication: CYTOMEGALOVIRUS INFECTION
     Route: 041
     Dates: start: 20011016, end: 20011018
  2. VESANOID [Suspect]
     Route: 048
     Dates: start: 20010903
  3. BAKTAR [Suspect]
     Route: 048
  4. MORPHINE HYDROCHLORIDE [Suspect]
     Indication: PAIN
     Dosage: DOSE: INCREASED GRADUALLY FROM 0.5ML/H.
     Route: 041
     Dates: start: 20010928
  5. PREDNISOLONE [Suspect]
     Indication: DRUG USE FOR UNKNOWN INDICATION
     Dosage: FORM: ORAL FORMULATIN NOS
     Route: 048
     Dates: start: 20001225, end: 20001225
  6. PREDNISOLONE [Suspect]
     Route: 048
     Dates: start: 20010805, end: 20010801
  7. PREDNISOLONE [Suspect]
     Route: 048
     Dates: start: 20010825
  8. ENDOXAN [Suspect]
     Indication: DRUG USE FOR UNKNOWN INDICATION
     Route: 048
     Dates: start: 20010805, end: 20010801
  9. ENDOXAN [Suspect]
     Route: 048
     Dates: start: 20010825
  10. ONCOVIN [Suspect]
     Indication: DRUG USE FOR UNKNOWN INDICATION
     Route: 042
     Dates: start: 20010825
  11. DOXORUBICIN HCL [Suspect]
     Indication: DRUG USE FOR UNKNOWN INDICATION
     Dosage: PART OF VEPA THERAPY. START DATE: BEGINNING OF AUGUST 2001.
     Route: 042
     Dates: start: 20010805
  12. FUNGIZONE [Suspect]
     Indication: DRUG USE FOR UNKNOWN INDICATION
     Route: 048
  13. PIRARUBICIN HYDROCHLORIDE [Suspect]
     Indication: DRUG USE FOR UNKNOWN INDICATION
     Route: 042
     Dates: start: 20010825
  14. NORPACE [Suspect]
     Indication: DRUG USE FOR UNKNOWN INDICATION
     Route: 048
     Dates: start: 20010923
  15. TAKEPRON [Concomitant]
     Dosage: FORM: ORAL FORMULATION NOS
     Route: 048
  16. ZYLORIC [Concomitant]
     Route: 048
  17. BISPHOSPHONATE [Concomitant]
     Indication: HYPERCALCAEMIA
     Route: 065

REACTIONS (4)
  - ALTERED STATE OF CONSCIOUSNESS [None]
  - COMA [None]
  - CYTOMEGALOVIRUS INFECTION [None]
  - RENAL DISORDER [None]
